FAERS Safety Report 6999576-X (Version None)
Quarter: 2010Q3

REPORT INFORMATION
  Report Type: 
  Country: None (occurrence: None)
  Receive Date: 20100920
  Receipt Date: 20070530
  Transmission Date: 20110219
  Serious: Yes (Hospitalization, Other)
  Sender: FDA-Public Use
  Company Number: US-ASTRAZENECA-2006UW23762

PATIENT
  Age: 42 Year
  Sex: Female
  Weight: 80.3 kg

DRUGS (18)
  1. SEROQUEL [Suspect]
     Indication: DEPRESSION
     Route: 048
     Dates: start: 20010101, end: 20060101
  2. SEROQUEL [Suspect]
     Route: 048
  3. SEROQUEL [Suspect]
     Dosage: 75-200 MG AT BEDTIME
     Route: 048
     Dates: start: 20040109
  4. ZOLOFT [Concomitant]
     Dosage: 50-150 MG DAILY
     Route: 048
     Dates: start: 20040818
  5. ATENOLOL [Concomitant]
     Dosage: 50-100 MG
     Dates: start: 20040818
  6. HYDROCHLOROTHIAZIDE [Concomitant]
     Route: 048
     Dates: start: 20040818
  7. DESYREL [Concomitant]
     Dosage: 100-150 MG
     Route: 048
     Dates: start: 20040818
  8. VISTARIL [Concomitant]
     Route: 048
     Dates: start: 20040818
  9. CLONIDINE [Concomitant]
     Dosage: 0.2-0.6 MG
     Route: 048
     Dates: start: 20050927
  10. LISINOPRIL [Concomitant]
     Dates: start: 20050927
  11. LIPITOR [Concomitant]
     Dosage: 10-40 MG DAILY
     Route: 048
     Dates: start: 20050927
  12. GLUCOTROL [Concomitant]
     Indication: DIABETES MELLITUS
     Dosage: 3-5 MG DAILY
     Dates: start: 20040109
  13. LEXAPRO [Concomitant]
     Dates: start: 20060918
  14. LYRICA [Concomitant]
     Route: 048
     Dates: start: 20070712
  15. BUSPAR [Concomitant]
     Dosage: 5-45 MG
     Route: 048
     Dates: start: 20060721
  16. CELEBREX [Concomitant]
     Route: 048
     Dates: start: 20070130
  17. MEVACOR [Concomitant]
     Route: 048
     Dates: start: 20070130
  18. PREMARIN [Concomitant]
     Route: 048
     Dates: start: 20070130

REACTIONS (12)
  - ARTHRITIS [None]
  - BLOOD CHOLESTEROL INCREASED [None]
  - DEPRESSION [None]
  - DIABETES MELLITUS [None]
  - DIABETES MELLITUS INADEQUATE CONTROL [None]
  - DIABETIC HYPEROSMOLAR COMA [None]
  - DYSLIPIDAEMIA [None]
  - HYPERLIPIDAEMIA [None]
  - MAJOR DEPRESSION [None]
  - MIXED HYPERLIPIDAEMIA [None]
  - OSTEOARTHRITIS [None]
  - TYPE 2 DIABETES MELLITUS [None]
